FAERS Safety Report 9518651 (Version 3)
Quarter: 2013Q4

REPORT INFORMATION
  Report Type: Spontaneous
  Country: TR (occurrence: TR)
  Receive Date: 20130912
  Receipt Date: 20131014
  Transmission Date: 20140711
  Serious: No
  Sender: FDA-Public Use
  Company Number: PHHY2013TR100436

PATIENT
  Age: 53 Year
  Sex: Male
  Weight: 78 kg

DRUGS (4)
  1. CO-DIOVAN [Suspect]
     Indication: HYPERTENSION
     Dosage: 1 DF, (VALS 160 MG /HCT 12.5 MG) QD
     Route: 048
     Dates: start: 2011, end: 201307
  2. CIPRALEX [Concomitant]
     Dosage: 10 MG, QD
     Route: 048
     Dates: start: 2011
  3. CORASPIN [Concomitant]
     Dosage: 100 MG, QD
     Route: 048
     Dates: start: 2011
  4. NORVASC [Concomitant]
     Dosage: 10 MG, QD
     Route: 048
     Dates: start: 2011

REACTIONS (1)
  - Breast mass [Recovered/Resolved]
